FAERS Safety Report 25988431 (Version 1)
Quarter: 2025Q4

REPORT INFORMATION
  Report Type: Spontaneous
  Country: VN (occurrence: VN)
  Receive Date: 20251103
  Receipt Date: 20251103
  Transmission Date: 20260118
  Serious: Yes (Other)
  Sender: BRISTOL-MYERS SQUIBB COMPANY
  Company Number: VN-BRISTOL-MYERS SQUIBB COMPANY-2025-148135

PATIENT
  Age: 86 Year
  Sex: Male

DRUGS (1)
  1. NIVOLUMAB [Suspect]
     Active Substance: NIVOLUMAB
     Indication: Renal cancer stage IV

REACTIONS (2)
  - Pemphigoid [Recovering/Resolving]
  - Psoriasis [Unknown]
